FAERS Safety Report 6795370-3 (Version None)
Quarter: 2010Q2

REPORT INFORMATION
  Report Type: 
  Country: None (occurrence: None)
  Receive Date: 20100625
  Receipt Date: 20100614
  Transmission Date: 20101027
  Serious: Yes (Life-Threatening, Disabling, Other)
  Sender: FDA-Public Use
  Company Number: DE-PFIZER INC-2010074789

PATIENT
  Sex: Male

DRUGS (8)
  1. DOXORUBICIN HCL [Suspect]
  2. METHOTREXATE [Suspect]
  3. CYCLOPHOSPHAMIDE [Suspect]
  4. CYTARABINE [Suspect]
  5. DEXAMETHASONE [Suspect]
  6. IFOSFAMIDE [Suspect]
  7. ETOPOSIDE [Suspect]
  8. CISPLATIN [Suspect]

REACTIONS (4)
  - BONE MARROW FAILURE [None]
  - DEAFNESS [None]
  - FEBRILE BONE MARROW APLASIA [None]
  - MUCOSAL INFLAMMATION [None]
